FAERS Safety Report 5254587-X (Version None)
Quarter: 2007Q1

REPORT INFORMATION
  Report Type: 
  Country: None (occurrence: None)
  Receive Date: 20070302
  Receipt Date: 20070220
  Transmission Date: 20070707
  Serious: Yes (Life-Threatening)
  Sender: FDA-Public Use
  Company Number: PL-PFIZER INC-2007013538

PATIENT
  Sex: Female
  Weight: 65 kg

DRUGS (5)
  1. ZYVOX [Suspect]
     Route: 042
     Dates: start: 20070202, end: 20070204
  2. PROXACIN [Concomitant]
     Route: 042
  3. VFEND [Concomitant]
     Route: 042
  4. SULPERAZON [Concomitant]
     Route: 042
  5. EDICIN [Concomitant]
     Route: 042

REACTIONS (3)
  - ANXIETY [None]
  - ASTHENIA [None]
  - DYSPNOEA [None]
